FAERS Safety Report 13760691 (Version 1)
Quarter: 2017Q3

REPORT INFORMATION
  Report Type: Spontaneous
  Country: US (occurrence: US)
  Receive Date: 20170717
  Receipt Date: 20170717
  Transmission Date: 20171127
  Serious: No
  Sender: FDA-Public Use
  Company Number: US-MALLINCKRODT-T201700164

PATIENT
  Sex: Female

DRUGS (1)
  1. ACETAMINOPHEN AND CODEINE [Suspect]
     Active Substance: ACETAMINOPHEN\CODEINE PHOSPHATE
     Indication: PRODUCT USED FOR UNKNOWN INDICATION
     Dosage: 300/30 MG, Q6HRS
     Route: 048
     Dates: start: 201610

REACTIONS (2)
  - Product quality issue [Not Recovered/Not Resolved]
  - Drug screen negative [Not Recovered/Not Resolved]
